FAERS Safety Report 16199342 (Version 2)
Quarter: 2019Q2

REPORT INFORMATION
  Report Type: Report from Study
  Country: US (occurrence: US)
  Receive Date: 20190415
  Receipt Date: 20190430
  Transmission Date: 20190711
  Serious: Yes (Other)
  Sender: FDA-Public Use
  Company Number: US-PFIZER INC-2018476235

PATIENT
  Age: 62 Year
  Sex: Male

DRUGS (3)
  1. SUTENT [Suspect]
     Active Substance: SUNITINIB MALATE
     Dosage: 25 MG, DAILY
     Route: 048
     Dates: start: 20190418
  2. SUTENT [Suspect]
     Active Substance: SUNITINIB MALATE
     Dosage: 25 MG, DAILY
     Route: 048
     Dates: start: 20190102, end: 20190320
  3. SUTENT [Suspect]
     Active Substance: SUNITINIB MALATE
     Indication: PANCREATIC CARCINOMA
     Dosage: 37.5 MG, DAILY
     Route: 048
     Dates: start: 20181101, end: 20181205

REACTIONS (11)
  - Injury [Unknown]
  - Rib fracture [Recovered/Resolved]
  - Back pain [Recovering/Resolving]
  - Memory impairment [Not Recovered/Not Resolved]
  - Fall [Unknown]
  - Leukopenia [Unknown]
  - Dysgeusia [Recovering/Resolving]
  - Hypertension [Recovering/Resolving]
  - Diarrhoea [Unknown]
  - Pneumonia [Unknown]
  - Furuncle [Recovering/Resolving]

NARRATIVE: CASE EVENT DATE: 2018
